FAERS Safety Report 22149263 (Version 1)
Quarter: 2023Q1

REPORT INFORMATION
  Report Type: Spontaneous
  Country: US (occurrence: US)
  Receive Date: 20230329
  Receipt Date: 20230329
  Transmission Date: 20230417
  Serious: No
  Sender: FDA-Public Use
  Company Number: US-drreddys-SPO/USA/23/0160894

PATIENT
  Age: 20 Year

DRUGS (1)
  1. ZENATANE [Suspect]
     Active Substance: ISOTRETINOIN
     Indication: Product used for unknown indication
     Dosage: RMA ISSUE DATE: 22 JULY 2022 10:36:01 PM, 23 AUGUST 2022 12:54:43 PM, 26 SEPTEMBER 2022 10:49:16 AM,

REACTIONS (1)
  - Abdominal discomfort [Unknown]
